FAERS Safety Report 6721733-8 (Version None)
Quarter: 2010Q2

REPORT INFORMATION
  Report Type: 
  Country: None (occurrence: None)
  Receive Date: 20100512
  Receipt Date: 20100512
  Transmission Date: 20101027
  Serious: Yes (Other)
  Sender: FDA-Public Use
  Company Number: None

PATIENT
  Age: 10 Year
  Sex: Male
  Weight: 47.6277 kg

DRUGS (2)
  1. ZYRTEC [Suspect]
     Indication: MULTIPLE ALLERGIES
     Dosage: 10ML 1 TIME DAILY ORAL
     Route: 048
     Dates: start: 20100428, end: 20100429
  2. CHILDREN'S MOTRIN [Suspect]
     Indication: HEADACHE
     Dosage: 3TSP. 7AM AND 8PM ORAL
     Route: 048
     Dates: start: 20100429

REACTIONS (2)
  - HEADACHE [None]
  - VOMITING [None]
